FAERS Safety Report 22064732 (Version 1)
Quarter: 2023Q1

REPORT INFORMATION
  Report Type: Spontaneous
  Country: US (occurrence: US)
  Receive Date: 20230306
  Receipt Date: 20230306
  Transmission Date: 20230418
  Serious: No
  Sender: FDA-Public Use
  Company Number: US-JNJFOC-20230258373

PATIENT
  Sex: Female
  Weight: 83.990 kg

DRUGS (5)
  1. TREMFYA [Suspect]
     Active Substance: GUSELKUMAB
     Indication: Psoriasis
     Route: 065
     Dates: start: 20220830
  2. TREMFYA [Suspect]
     Active Substance: GUSELKUMAB
     Indication: Psoriatic arthropathy
  3. MAGNESIUM [Concomitant]
     Active Substance: MAGNESIUM
  4. CELEBREX [Concomitant]
     Active Substance: CELECOXIB
  5. LEVOTHYROXINE [Concomitant]
     Active Substance: LEVOTHYROXINE

REACTIONS (4)
  - Pain [Unknown]
  - Skin exfoliation [Unknown]
  - Therapy interrupted [Unknown]
  - Drug ineffective [Unknown]
